FAERS Safety Report 9324868 (Version 1)
Quarter: 2013Q2

REPORT INFORMATION
  Report Type: Spontaneous
  Country: US (occurrence: US)
  Receive Date: 20130603
  Receipt Date: 20130603
  Transmission Date: 20140414
  Serious: Yes (Hospitalization, Other)
  Sender: FDA-Public Use
  Company Number: PHHY2013US054191

PATIENT
  Age: 60 Year
  Sex: Male

DRUGS (2)
  1. METFORMIN [Suspect]
  2. VICODIN [Concomitant]

REACTIONS (12)
  - Toxicity to various agents [Unknown]
  - Vomiting [Unknown]
  - Somnolence [Unknown]
  - Breath odour [Unknown]
  - Diarrhoea [Recovered/Resolved]
  - Lethargy [Unknown]
  - Lactic acidosis [Unknown]
  - Blindness transient [Unknown]
  - Vision blurred [Recovered/Resolved]
  - Tachypnoea [Unknown]
  - Tachycardia [Unknown]
  - Renal failure [Unknown]
